FAERS Safety Report 4347953-8 (Version None)
Quarter: 2004Q1

REPORT INFORMATION
  Report Type: 
  Country: None (occurrence: None)
  Receive Date: 20040325
  Receipt Date: 20040121
  Transmission Date: 20041129
  Serious: No
  Sender: FDA-Public Use
  Company Number: USA040157138

PATIENT
  Age: 83 Year
  Sex: Female

DRUGS (2)
  1. FORTEO [Suspect]
     Dates: start: 20040114, end: 20040120
  2. SCOPOLAMINE [Concomitant]

REACTIONS (7)
  - DIZZINESS [None]
  - GAIT DISTURBANCE [None]
  - INSOMNIA [None]
  - MENIERE'S DISEASE [None]
  - MUSCLE TWITCHING [None]
  - NAUSEA [None]
  - PRURITUS [None]
